FAERS Safety Report 5017904-1 (Version None)
Quarter: 2006Q2

REPORT INFORMATION
  Report Type: 
  Country: None (occurrence: None)
  Receive Date: 20060602
  Receipt Date: 20060602
  Transmission Date: 20061013
  Serious: No
  Sender: FDA-Public Use
  Company Number: None

PATIENT
  Age: 46 Year
  Sex: Male
  Weight: 93.441 kg

DRUGS (1)
  1. AMITRIPTYLINE HCL [Suspect]
     Indication: SLEEP DISORDER
     Dosage: 50 MG.   3 TIME ADAY   PO
     Route: 048
     Dates: start: 19930805, end: 19951029

REACTIONS (3)
  - GINGIVAL ABSCESS [None]
  - TOOTH DISORDER [None]
  - TOOTH LOSS [None]
